FAERS Safety Report 6886536-2 (Version None)
Quarter: 2010Q3

REPORT INFORMATION
  Report Type: 
  Country: None (occurrence: None)
  Receive Date: 20100730
  Receipt Date: 20100722
  Transmission Date: 20110219
  Serious: Yes (Hospitalization)
  Sender: FDA-Public Use
  Company Number: 142027

PATIENT
  Age: 46 Year
  Sex: Female
  Weight: 72 kg

DRUGS (7)
  1. AVONEX [Suspect]
     Indication: MULTIPLE SCLEROSIS
     Route: 030
     Dates: start: 20000403, end: 20000811
  2. AVONEX [Suspect]
     Route: 030
     Dates: start: 20000904, end: 20010903
  3. AVONEX [Suspect]
     Route: 030
     Dates: start: 20091113
  4. PREVACID [Concomitant]
     Indication: HIATUS HERNIA
  5. ZOLOFT [Concomitant]
     Indication: DEPRESSION
     Dates: start: 20000301
  6. CALCIUM NOS [Concomitant]
     Indication: OSTEOPOROSIS
     Dates: start: 20000301
  7. CLARITIN [Concomitant]
     Indication: MULTIPLE ALLERGIES

REACTIONS (3)
  - CORONARY ARTERY OCCLUSION [None]
  - INFLUENZA LIKE ILLNESS [None]
  - MYOCARDIAL INFARCTION [None]
